FAERS Safety Report 24106160 (Version 1)
Quarter: 2024Q3

REPORT INFORMATION
  Report Type: Spontaneous
  Country: US (occurrence: US)
  Receive Date: 20240717
  Receipt Date: 20240717
  Transmission Date: 20241016
  Serious: No
  Sender: AVERITAS
  Company Number: US-GRUNENTHAL-2023-270604

PATIENT
  Sex: Male
  Weight: 68.934 kg

DRUGS (7)
  1. QUTENZA [Suspect]
     Active Substance: CAPSAICIN
     Indication: Diabetic neuropathy
     Dosage: 1 DOSAGE FORM, ONCE
     Route: 061
     Dates: start: 20230629, end: 20230629
  2. QUTENZA [Suspect]
     Active Substance: CAPSAICIN
     Dosage: 1 DOSAGE FORM, ONCE
     Route: 061
     Dates: start: 20230324, end: 20230324
  3. SIMVASTATIN [Concomitant]
     Active Substance: SIMVASTATIN
     Dosage: UNK
     Route: 065
  4. LOSARTAN [Concomitant]
     Active Substance: LOSARTAN
     Dosage: UNK
     Route: 065
  5. GABAPENTIN [Concomitant]
     Active Substance: GABAPENTIN
     Dosage: 2100 MILLIGRAM, 1/DAY
     Route: 065
  6. LANTUS [Concomitant]
     Active Substance: INSULIN GLARGINE
     Dosage: UNK, 2/DAY
     Route: 065
  7. OZEMPIC [Concomitant]
     Active Substance: SEMAGLUTIDE
     Dosage: UNK, 1/WEEK
     Route: 065

REACTIONS (2)
  - Application site pain [Recovered/Resolved]
  - Application site hypoaesthesia [Recovering/Resolving]

NARRATIVE: CASE EVENT DATE: 20230101
